FAERS Safety Report 5365456-9 (Version None)
Quarter: 2007Q2

REPORT INFORMATION
  Report Type: 
  Country: None (occurrence: None)
  Receive Date: 20070621
  Receipt Date: 20070613
  Transmission Date: 20071010
  Serious: Yes (Hospitalization, Other)
  Sender: FDA-Public Use
  Company Number: US-MERCK-0612USA00270

PATIENT
  Age: 59 Year
  Sex: Female
  Weight: 73 kg

DRUGS (2)
  1. FOSAMAX [Suspect]
     Indication: RESORPTION BONE INCREASED
     Route: 048
  2. ZOMETA [Suspect]
     Indication: RESORPTION BONE INCREASED
     Route: 065
     Dates: start: 20031011

REACTIONS (9)
  - BONE NEOPLASM MALIGNANT [None]
  - DEPRESSION [None]
  - DYSPNOEA [None]
  - LYMPHOEDEMA [None]
  - NIGHT SWEATS [None]
  - OSTEONECROSIS [None]
  - PYREXIA [None]
  - RECTAL HAEMORRHAGE [None]
  - URINARY TRACT INFECTION [None]
